FAERS Safety Report 20337008 (Version 2)
Quarter: 2022Q1

REPORT INFORMATION
  Report Type: Spontaneous
  Country: US (occurrence: US)
  Receive Date: 20220114
  Receipt Date: 20220304
  Transmission Date: 20220423
  Serious: Yes (Other)
  Sender: FDA-Public Use
  Company Number: US-CATALYST PHARMACEUTICALS, INC-2022CAT00006

PATIENT
  Sex: Male
  Weight: 108.84 kg

DRUGS (6)
  1. FIRDAPSE [Suspect]
     Active Substance: AMIFAMPRIDINE PHOSPHATE
     Indication: Myasthenic syndrome
     Dosage: 20 MG, 1X/DAY IN THE MORNING
     Route: 048
     Dates: start: 2020
  2. FIRDAPSE [Suspect]
     Active Substance: AMIFAMPRIDINE PHOSPHATE
     Dosage: 10 MG, 6X/DAY (EVERY COUPLE HOURS)
     Route: 048
     Dates: start: 2020
  3. METOPROLOL [Concomitant]
     Active Substance: METOPROLOL
     Dosage: UNK, 2X/DAY
  4. CYMBALTA [Concomitant]
     Active Substance: DULOXETINE HYDROCHLORIDE
     Dosage: UNK, 1X/DAY AT NIGHT BEFORE BED
  5. PEPCID [Concomitant]
     Active Substance: FAMOTIDINE
  6. FLOMAX [Concomitant]
     Active Substance: TAMSULOSIN HYDROCHLORIDE

REACTIONS (3)
  - Condition aggravated [Unknown]
  - Epicondylitis [Unknown]
  - Cubital tunnel syndrome [Unknown]

NARRATIVE: CASE EVENT DATE: 20210101
